FAERS Safety Report 8896383 (Version 2)
Quarter: 2013Q1

REPORT INFORMATION
  Report Type: Spontaneous
  Country: US (occurrence: None)
  Receive Date: 20121101
  Receipt Date: 20130102
  Transmission Date: 20140127
  Serious: No
  Sender: FDA-Public Use
  Company Number: SPI201200282

PATIENT
  Age: 18 Year
  Sex: Female
  Weight: 81.6 kg

DRUGS (2)
  1. AMITIZA [Suspect]
     Indication: CONSTIPATION
     Route: 048
  2. REMICADE [Suspect]
     Indication: JUVENILE IDIOPATHIC ARTHRITIS
     Dosage: Q8 WK, INTRAVENOUS
     Route: 042

REACTIONS (1)
  - Dyspnoea [None]
